FAERS Safety Report 8520166-1 (Version None)
Quarter: 2012Q3

REPORT INFORMATION
  Report Type: 
  Country: None (occurrence: None)
  Receive Date: 20120705
  Receipt Date: 20120622
  Transmission Date: 20120928
  Serious: Yes (Life-Threatening, Hospitalization)
  Sender: FDA-Public Use
  Company Number: 2012SP022962

PATIENT
  Age: 37 Year
  Sex: Female
  Weight: 46 kg

DRUGS (5)
  1. REBETOL [Suspect]
     Indication: PRODUCT USED FOR UNKNOWN INDICATION
     Dosage: 600 MG, BID, PO
     Route: 048
     Dates: start: 20120106, end: 20120425
  2. PEG-INTRON [Suspect]
     Indication: PRODUCT USED FOR UNKNOWN INDICATION
     Dosage: 80 MCG, QW, SC
     Route: 058
     Dates: start: 20120106, end: 20120419
  3. ALLEGRA [Concomitant]
  4. LOXOPROFEN [Concomitant]
  5. TEPRENONE [Concomitant]

REACTIONS (2)
  - RUPTURED CEREBRAL ANEURYSM [None]
  - SUBARACHNOID HAEMORRHAGE [None]
